FAERS Safety Report 13898833 (Version 1)
Quarter: 2017Q3

REPORT INFORMATION
  Report Type: Spontaneous
  Country: US (occurrence: US)
  Receive Date: 20170823
  Receipt Date: 20170823
  Transmission Date: 20171127
  Serious: Yes (Hospitalization, Disabling, Other)
  Sender: FDA-Public Use
  Company Number: None

PATIENT
  Age: 28 Year
  Sex: Female
  Weight: 58.5 kg

DRUGS (3)
  1. PORTIA [Concomitant]
     Active Substance: ETHINYL ESTRADIOL\LEVONORGESTREL
  2. ADDERALL [Concomitant]
     Active Substance: AMPHETAMINE ASPARTATE\AMPHETAMINE SULFATE\DEXTROAMPHETAMINE SACCHARATE\DEXTROAMPHETAMINE SULFATE
  3. LEVOFLOXACIN. [Suspect]
     Active Substance: LEVOFLOXACIN
     Indication: SKIN INFECTION
     Dosage: ?          QUANTITY:7 TABLET(S);?
     Route: 048
     Dates: start: 20170811, end: 20170811

REACTIONS (5)
  - Pain [None]
  - Muscle spasms [None]
  - Muscular weakness [None]
  - Muscle tightness [None]
  - Paraesthesia [None]

NARRATIVE: CASE EVENT DATE: 20170811
